FAERS Safety Report 10062157 (Version 1)
Quarter: 2014Q2

REPORT INFORMATION
  Report Type: Spontaneous
  Country: US (occurrence: None)
  Receive Date: 20140404
  Receipt Date: 20140404
  Transmission Date: 20141212
  Serious: Yes (Other)
  Sender: FDA-Public Use
  Company Number: None

PATIENT
  Age: 83 Year
  Sex: Female

DRUGS (1)
  1. SENSIPAR [Suspect]
     Route: 048
     Dates: start: 20140218

REACTIONS (3)
  - Feeling jittery [None]
  - Anxiety [None]
  - Insomnia [None]
